FAERS Safety Report 8903239 (Version 3)
Quarter: 2012Q4

REPORT INFORMATION
  Report Type: 
  Country: BR (occurrence: BR)
  Receive Date: 20121113
  Receipt Date: 20121211
  Transmission Date: 20130627
  Serious: Yes (Other)
  Sender: FDA-Public Use
  Company Number: BR-PFIZER INC-2012280813

PATIENT
  Age: 47 Year
  Sex: Female
  Weight: 70 kg

DRUGS (11)
  1. PRISTIQ [Suspect]
     Indication: FEELING SAD
     Dosage: 100 mg, 1x/day (in the morning)
     Route: 048
     Dates: start: 201108
  2. PRISTIQ [Suspect]
     Indication: ANXIETY
  3. PRISTIQ [Suspect]
     Indication: DEPRESSION
  4. TAXOL [Suspect]
     Indication: BREAST CANCER
     Dosage: UNK
  5. TAXOL [Suspect]
     Indication: CHEMOTHERAPY
  6. ZOFRAN [Suspect]
     Indication: BREAST CANCER
     Dosage: UNK
     Dates: start: 2012
  7. ZOFRAN [Suspect]
     Indication: CHEMOTHERAPY
  8. DECADRON [Suspect]
     Indication: BREAST CANCER
     Dosage: UNK
     Dates: start: 2012
  9. DECADRON [Suspect]
     Indication: CHEMOTHERAPY
  10. RIVOTRIL [Suspect]
     Indication: RESTLESS LEGS SYNDROME
     Dosage: 0.5 mg, 1x/day (at night)
     Dates: start: 201108
  11. ANTAK [Concomitant]
     Indication: NAUSEA
     Dosage: 300 mg, 1x/day, in the morning

REACTIONS (9)
  - Breast cancer [Unknown]
  - Crying [Unknown]
  - Weight increased [Recovered/Resolved]
  - Drug ineffective [Unknown]
  - Oedema peripheral [Unknown]
  - Blood pressure abnormal [Unknown]
  - Fluid retention [Unknown]
  - Wrong technique in drug usage process [Unknown]
  - Hyperaemia [Unknown]
